FAERS Safety Report 5556498-9 (Version None)
Quarter: 2007Q4

REPORT INFORMATION
  Report Type: 
  Country: None (occurrence: None)
  Receive Date: 20071213
  Receipt Date: 20070906
  Transmission Date: 20080405
  Serious: No
  Sender: FDA-Public Use
  Company Number: US-AMGEN-KDL242115

PATIENT
  Age: 28 Year
  Sex: Female

DRUGS (3)
  1. ENBREL [Suspect]
     Indication: SPONDYLOARTHROPATHY
     Route: 058
     Dates: start: 20070701, end: 20070829
  2. SULFASALAZINE [Concomitant]
  3. INDOMETHACIN [Concomitant]

REACTIONS (2)
  - PRURITUS GENERALISED [None]
  - SLEEP DISORDER [None]
